FAERS Safety Report 13584255 (Version 1)
Quarter: 2017Q2

REPORT INFORMATION
  Report Type: Spontaneous
  Country: US (occurrence: US)
  Receive Date: 20170526
  Receipt Date: 20170526
  Transmission Date: 20170830
  Serious: No
  Sender: FDA-Public Use
  Company Number: US-PFIZER INC-2017229257

PATIENT
  Age: 73 Year
  Sex: Male
  Weight: 92.99 kg

DRUGS (6)
  1. PROBENECIDE [Suspect]
     Active Substance: PROBENECID
     Indication: OSTEOARTHRITIS
     Dosage: 500 MG, 4X/DAY (TWO IN THE MORNING AND TWO AT NIGHT)
     Route: 048
  2. PROBENECIDE [Suspect]
     Active Substance: PROBENECID
     Indication: CHONDROCALCINOSIS PYROPHOSPHATE
  3. INDOMETHACIN /00003801/ [Suspect]
     Active Substance: INDOMETHACIN
     Indication: CHONDROCALCINOSIS PYROPHOSPHATE
  4. INDOMETHACIN /00003801/ [Suspect]
     Active Substance: INDOMETHACIN
     Indication: OSTEOARTHRITIS
     Dosage: 25 MG, 1X/DAY AT NIGHT
     Route: 048
  5. GABAPENTIN. [Suspect]
     Active Substance: GABAPENTIN
     Indication: CHONDROCALCINOSIS PYROPHOSPHATE
  6. GABAPENTIN. [Suspect]
     Active Substance: GABAPENTIN
     Indication: OSTEOARTHRITIS
     Dosage: 300 MG, 2X/DAY (ONE IN MORNING AND ONE AT NIGHT)
     Route: 048

REACTIONS (1)
  - Dyspepsia [Unknown]
